FAERS Safety Report 19176294 (Version 1)
Quarter: 2021Q2

REPORT INFORMATION
  Report Type: Spontaneous
  Country: US (occurrence: US)
  Receive Date: 20210423
  Receipt Date: 20210423
  Transmission Date: 20210717
  Serious: No
  Sender: FDA-Public Use
  Company Number: 2020SGN03347

PATIENT
  Sex: Female

DRUGS (2)
  1. TUKYSA [Suspect]
     Active Substance: TUCATINIB
     Indication: BREAST CANCER FEMALE
     Dosage: UNK, BID
     Route: 048
  2. XELODA [Concomitant]
     Active Substance: CAPECITABINE

REACTIONS (12)
  - Skin discolouration [Unknown]
  - Adverse drug reaction [Unknown]
  - Vitamin D deficiency [Unknown]
  - Hypersomnia [Unknown]
  - Neuropathy peripheral [Unknown]
  - Muscle spasms [Unknown]
  - Product dose omission issue [Unknown]
  - Limb injury [Unknown]
  - Depression [Unknown]
  - Fatigue [Unknown]
  - Onychomadesis [Unknown]
  - Depressed mood [Unknown]
